FAERS Safety Report 24172581 (Version 1)
Quarter: 2024Q3

REPORT INFORMATION
  Report Type: Spontaneous
  Country: US (occurrence: US)
  Receive Date: 20240805
  Receipt Date: 20240805
  Transmission Date: 20241016
  Serious: Yes (Other)
  Sender: AMGEN
  Company Number: US-AMGEN-USASP2024150239

PATIENT
  Age: 74 Year
  Sex: Male
  Weight: 77.4 kg

DRUGS (1)
  1. VECTIBIX [Suspect]
     Active Substance: PANITUMUMAB
     Indication: Colon cancer
     Dosage: 350 MILLIGRAM
     Route: 065
     Dates: end: 2024

REACTIONS (1)
  - Colon cancer [Unknown]
